FAERS Safety Report 8800382 (Version 2)
Quarter: 2015Q1

REPORT INFORMATION
  Report Type: Report from Study
  Country: US (occurrence: US)
  Receive Date: 20120921
  Receipt Date: 20150316
  Transmission Date: 20150721
  Serious: Yes (Death)
  Sender: FDA-Public Use
  Company Number: US-ROCHE-1123652

PATIENT
  Age: 64 Year
  Sex: Female

DRUGS (11)
  1. ABRAXANE [Concomitant]
     Active Substance: PACLITAXEL
  2. AVASTIN [Suspect]
     Active Substance: BEVACIZUMAB
     Indication: METASTASES TO LIVER
  3. NEUPOGEN [Concomitant]
     Active Substance: FILGRASTIM
     Route: 065
  4. ZOFRAN [Concomitant]
     Active Substance: ONDANSETRON HYDROCHLORIDE
  5. KYTRIL [Concomitant]
     Active Substance: GRANISETRON HYDROCHLORIDE
     Route: 065
  6. GEMZAR [Concomitant]
     Active Substance: GEMCITABINE HYDROCHLORIDE
  7. ARANESP [Concomitant]
     Active Substance: DARBEPOETIN ALFA
  8. XELODA [Suspect]
     Active Substance: CAPECITABINE
     Indication: PRODUCT USED FOR UNKNOWN INDICATION
     Route: 048
     Dates: start: 20051016
  9. TAXOL [Concomitant]
     Active Substance: PACLITAXEL
  10. NAVELBINE [Concomitant]
     Active Substance: VINORELBINE TARTRATE
  11. AVASTIN [Suspect]
     Active Substance: BEVACIZUMAB
     Indication: BREAST CANCER FEMALE
     Route: 042
     Dates: start: 20070524

REACTIONS (21)
  - Hypoaesthesia [Unknown]
  - Pain [Unknown]
  - Ascites [Unknown]
  - Blood alkaline phosphatase increased [Unknown]
  - Abdominal distension [Unknown]
  - Bone marrow failure [Unknown]
  - Respiratory tract congestion [Unknown]
  - Neurotoxicity [Unknown]
  - Decreased appetite [Unknown]
  - Frequent bowel movements [Unknown]
  - Skin fissures [Unknown]
  - Erythema [Unknown]
  - Cough [Unknown]
  - Thrombocytopenia [Unknown]
  - Malaise [Unknown]
  - Pyrexia [Recovered/Resolved]
  - Asthenia [Unknown]
  - Leukopenia [Unknown]
  - Malignant neoplasm progression [Unknown]
  - Jaundice [Unknown]
  - Death [Fatal]

NARRATIVE: CASE EVENT DATE: 20070604
